FAERS Safety Report 9331582 (Version 1)
Quarter: 2013Q2

REPORT INFORMATION
  Report Type: Spontaneous
  Country: US (occurrence: US)
  Receive Date: 20130605
  Receipt Date: 20130605
  Transmission Date: 20140414
  Serious: Yes (Other)
  Sender: FDA-Public Use
  Company Number: US-JNJFOC-20130522924

PATIENT
  Age: 40 Year
  Sex: Female
  Weight: 67.12 kg

DRUGS (1)
  1. NICOTROL NASAL SPRAY [Suspect]
     Indication: SMOKING CESSATION THERAPY
     Route: 045
     Dates: start: 2013, end: 2013

REACTIONS (1)
  - Precancerous cells present [Unknown]
